FAERS Safety Report 5824207-1 (Version None)
Quarter: 2008Q3

REPORT INFORMATION
  Report Type: 
  Country: None (occurrence: None)
  Receive Date: 20080721
  Receipt Date: 20080717
  Transmission Date: 20090109
  Serious: Yes (Other)
  Sender: FDA-Public Use
  Company Number: 08H-167-0314577-00

PATIENT
  Age: 35 Year
  Sex: Female

DRUGS (5)
  1. ONDANSETRON INJECTION 2 MG/ ML PRESERVATIVE FREE (ONDANSETRON INJECTIO [Suspect]
     Indication: DRUG USE FOR UNKNOWN INDICATION
     Dosage: 4 MG,
     Dates: start: 20080621, end: 20080623
  2. CYCLIZINE (CYCLIZINE) [Suspect]
     Indication: DRUG USE FOR UNKNOWN INDICATION
     Dosage: 50 MG,
     Dates: start: 20080621, end: 20080622
  3. IBUPROFEN [Suspect]
     Indication: DRUG USE FOR UNKNOWN INDICATION
     Dosage: 400 MG,
     Dates: start: 20080622, end: 20080623
  4. CIPROFLOXACIN [Concomitant]
  5. FENTANYL [Concomitant]

REACTIONS (5)
  - HYPOTENSION [None]
  - MUSCULAR WEAKNESS [None]
  - RASH ERYTHEMATOUS [None]
  - SENSATION OF HEAVINESS [None]
  - TACHYCARDIA [None]
